FAERS Safety Report 10427060 (Version 1)
Quarter: 2014Q3

REPORT INFORMATION
  Report Type: Spontaneous
  Country: US (occurrence: None)
  Receive Date: 20140902
  Receipt Date: 20140902
  Transmission Date: 20150326
  Serious: Yes (Other)
  Sender: FDA-Public Use
  Company Number: None

PATIENT
  Age: 63 Year
  Sex: Female
  Weight: 81.65 kg

DRUGS (1)
  1. CAPECITABINE 500MG TEVA PHARMACEUTICALS [Suspect]
     Active Substance: CAPECITABINE
     Indication: BREAST CANCER
     Dosage: 3 PILLS AM, 2 PILL PM, TWICE DAILY, TAKEN BY MOUTH
     Route: 048
     Dates: start: 20140728, end: 20140810

REACTIONS (3)
  - Neoplasm [None]
  - Adverse drug reaction [None]
  - Product quality issue [None]

NARRATIVE: CASE EVENT DATE: 20140810
